FAERS Safety Report 10160637 (Version 1)
Quarter: 2014Q2

REPORT INFORMATION
  Report Type: Report from Study
  Country: US (occurrence: US)
  Receive Date: 20140508
  Receipt Date: 20140508
  Transmission Date: 20141212
  Serious: Yes (Other)
  Sender: FDA-Public Use
  Company Number: US-ABBVIE-14P-163-1232026-00

PATIENT
  Age: 46 Year
  Sex: Male
  Weight: 109.87 kg

DRUGS (8)
  1. HUMIRA [Suspect]
     Indication: RHEUMATOID ARTHRITIS
     Route: 058
     Dates: start: 2008
  2. HUMIRA [Suspect]
     Route: 058
     Dates: start: 201403
  3. LEFLUNOMIDE [Concomitant]
     Indication: RHEUMATOID ARTHRITIS
  4. HYDROCODONE [Concomitant]
     Indication: PAIN
     Dosage: 10/325 QID
  5. FOLIC ACID [Concomitant]
     Indication: VITAMIN SUPPLEMENTATION
  6. VITAMIN D [Concomitant]
     Indication: VITAMIN SUPPLEMENTATION
  7. HYDROCHLOROTHIAZIDE W/LOSARTAN [Concomitant]
     Indication: HYPERTENSION
  8. POTASSIUM [Concomitant]
     Indication: HYPOKALAEMIA

REACTIONS (4)
  - Mobility decreased [Recovering/Resolving]
  - Arthralgia [Recovering/Resolving]
  - Joint swelling [Recovered/Resolved]
  - Arthralgia [Not Recovered/Not Resolved]
